FAERS Safety Report 7985655-7 (Version None)
Quarter: 2011Q4

REPORT INFORMATION
  Report Type: 
  Country: None (occurrence: None)
  Receive Date: 20111216
  Receipt Date: 20111207
  Transmission Date: 20120403
  Serious: Yes (Death, Hospitalization)
  Sender: FDA-Public Use
  Company Number: KR-BRISTOL-MYERS SQUIBB COMPANY-15851736

PATIENT
  Age: 68 Year
  Sex: Male

DRUGS (1)
  1. ENTECAVIR [Suspect]
     Indication: HEPATITIS B
     Dosage: 26FEB08-12JAN10(0.5MG),26FEB08-12JAN10(100MG),13JAN10-14NOV11(0.5MG)
     Route: 048
     Dates: start: 20100113, end: 20111114

REACTIONS (5)
  - MYOCARDIAL INFARCTION [None]
  - OPTIC NEUROPATHY [None]
  - SUBARACHNOID HAEMORRHAGE [None]
  - HYDROCEPHALUS [None]
  - SUBDURAL HAEMORRHAGE [None]
